FAERS Safety Report 6723446-5 (Version None)
Quarter: 2010Q2

REPORT INFORMATION
  Report Type: 
  Country: None (occurrence: None)
  Receive Date: 20100513
  Receipt Date: 20100510
  Transmission Date: 20101027
  Serious: Yes (Death)
  Sender: FDA-Public Use
  Company Number: PHHY2010BR30070

PATIENT
  Sex: Female

DRUGS (1)
  1. STALEVO 100 [Suspect]
     Dosage: 100 MG, BID
     Route: 048

REACTIONS (1)
  - DEATH [None]
